FAERS Safety Report 7235083-7 (Version None)
Quarter: 2011Q1

REPORT INFORMATION
  Report Type: 
  Country: None (occurrence: None)
  Receive Date: 20110120
  Receipt Date: 20110111
  Transmission Date: 20110831
  Serious: Yes (Hospitalization)
  Sender: FDA-Public Use
  Company Number: GB-ABBOTT-11P-167-0696972-00

PATIENT
  Age: 60 Year
  Sex: Male

DRUGS (2)
  1. TRUVADA [Concomitant]
     Indication: PRODUCT USED FOR UNKNOWN INDICATION
  2. KALETRA [Suspect]
     Indication: HIV INFECTION
     Dosage: 400/100 TWICE A DAY
     Route: 048
     Dates: start: 20080801

REACTIONS (3)
  - NEPHROLITHIASIS [None]
  - URETERIC OBSTRUCTION [None]
  - RENAL IMPAIRMENT [None]
